FAERS Safety Report 20349571 (Version 6)
Quarter: 2022Q2

REPORT INFORMATION
  Report Type: Report from Study
  Country: JP (occurrence: JP)
  Receive Date: 20220119
  Receipt Date: 20220415
  Transmission Date: 20220721
  Serious: Yes (Hospitalization, Other)
  Sender: FDA-Public Use
  Company Number: JP-CHUGAI-2022000190

PATIENT
  Age: 44 Year
  Sex: Female
  Weight: 48.4 kg

DRUGS (16)
  1. BEVACIZUMAB [Suspect]
     Active Substance: BEVACIZUMAB
     Indication: Breast cancer
     Dosage: RECENT DOSE ON 21/JAN/2022
     Route: 041
     Dates: start: 20211207
  2. PACLITAXEL [Suspect]
     Active Substance: PACLITAXEL
     Indication: Breast cancer
     Dosage: RECENT DOSE ON 21/JAN/2022
     Route: 041
     Dates: start: 20211207
  3. OXYCODONE HYDROCHLORIDE [Suspect]
     Active Substance: OXYCODONE HYDROCHLORIDE
     Indication: Cancer pain
     Dosage: 2.5 MILLIGRAM, QD
     Route: 048
     Dates: start: 20210716, end: 20220106
  4. OXYCODONE HYDROCHLORIDE [Suspect]
     Active Substance: OXYCODONE HYDROCHLORIDE
     Indication: Cancer pain
     Route: 048
     Dates: start: 20211207, end: 20220112
  5. DEXAMETHASONE SODIUM PHOSPHATE [Concomitant]
     Active Substance: DEXAMETHASONE SODIUM PHOSPHATE
     Indication: Prophylaxis
     Dosage: 8.25 MILLIGRAM, PRN
     Route: 065
     Dates: start: 20211207
  6. POLARAMINE [Concomitant]
     Active Substance: DEXCHLORPHENIRAMINE MALEATE
     Indication: Prophylaxis
     Dosage: 5 MILLIGRAM, PRN
     Route: 065
     Dates: start: 20211207
  7. FAMOTIDINE [Concomitant]
     Active Substance: FAMOTIDINE
     Indication: Prophylaxis
     Dosage: 20 MILLIGRAM, PRN
     Route: 065
     Dates: start: 20211207
  8. GRANISETRON [Concomitant]
     Active Substance: GRANISETRON
     Indication: Prophylaxis
     Dosage: 3 MILLIGRAM, PRN
     Route: 065
     Dates: start: 20211207
  9. LAFUTIDINE [Concomitant]
     Active Substance: LAFUTIDINE
     Indication: Gastritis prophylaxis
     Dosage: 10 MILLIGRAM, QD
     Route: 048
     Dates: start: 20210827
  10. SYMPROIC [Concomitant]
     Active Substance: NALDEMEDINE
     Indication: Cancer pain
     Dosage: 0.2 MILLIGRAM, QD
     Route: 048
     Dates: start: 20210810
  11. CALCIUM CARBONATE\CHOLECALCIFEROL\MAGNESIUM CARBONATE [Concomitant]
     Active Substance: CALCIUM CARBONATE\CHOLECALCIFEROL\MAGNESIUM CARBONATE
     Indication: Prophylaxis
     Dosage: 2 DOSAGE FORM, QD
     Route: 048
     Dates: start: 20210816
  12. CLARITIN [Concomitant]
     Active Substance: LORATADINE
     Indication: Dermatitis atopic
     Dosage: 10 MILLIGRAM, QD
     Route: 048
     Dates: start: 20210910
  13. MAGNESIUM OXIDE [Concomitant]
     Active Substance: MAGNESIUM OXIDE
     Indication: Constipation
     Dosage: 2250 MILLIGRAM
     Route: 048
     Dates: start: 20210716
  14. DENOSUMAB [Concomitant]
     Active Substance: DENOSUMAB
     Indication: Breast cancer
     Dosage: 120 MILLIGRAM, ONCE/MONTH
     Route: 058
     Dates: start: 20210716
  15. ARNUITY ELLIPTA [Concomitant]
     Active Substance: FLUTICASONE FUROATE
     Indication: Asthma
     Dosage: 100 MICROGRAM, QD
     Route: 055
     Dates: start: 20210726
  16. KETOPROFEN [Concomitant]
     Active Substance: KETOPROFEN
     Indication: Cancer pain
     Dosage: 20 MILLIGRAM, PRN
     Route: 061
     Dates: start: 20211214

REACTIONS (3)
  - Ileus paralytic [Recovered/Resolved]
  - Intracranial tumour haemorrhage [Recovered/Resolved]
  - Metastases to central nervous system [Unknown]

NARRATIVE: CASE EVENT DATE: 20220101
